FAERS Safety Report 13400850 (Version 1)
Quarter: 2017Q2

REPORT INFORMATION
  Report Type: Spontaneous
  Country: US (occurrence: US)
  Receive Date: 20170404
  Receipt Date: 20170404
  Transmission Date: 20170830
  Serious: Yes (Other)
  Sender: FDA-Public Use
  Company Number: US-SEBELA IRELAND LIMITED-2017SEB00233

PATIENT
  Age: 53 Year
  Sex: Female
  Weight: 64.4 kg

DRUGS (1)
  1. RIDAURA [Suspect]
     Active Substance: AURANOFIN
     Dosage: UNK
     Dates: start: 1987, end: 1987

REACTIONS (11)
  - Rheumatoid arthritis [Not Recovered/Not Resolved]
  - Fatigue [Unknown]
  - Rash [Not Recovered/Not Resolved]
  - Bunion operation [Unknown]
  - Pain [Unknown]
  - Rash papular [Not Recovered/Not Resolved]
  - Rash [Unknown]
  - Metatarsal excision [Unknown]
  - Vitamin D deficiency [Unknown]
  - Osteopenia [Not Recovered/Not Resolved]
  - Dry eye [Unknown]

NARRATIVE: CASE EVENT DATE: 1987
